FAERS Safety Report 25415137 (Version 1)
Quarter: 2025Q2

REPORT INFORMATION
  Report Type: Spontaneous
  Country: US (occurrence: US)
  Receive Date: 20250609
  Receipt Date: 20250609
  Transmission Date: 20250716
  Serious: Yes (Hospitalization)
  Sender: BEIGENE
  Company Number: US-BEIGENE-BGN-2025-008934

PATIENT
  Age: 67 Year

DRUGS (4)
  1. BRUKINSA [Suspect]
     Active Substance: ZANUBRUTINIB
     Indication: Chronic lymphocytic leukaemia
     Dosage: 160 MILLIGRAM (2 CAPSULES IN MORNING AND 2 CAPSULES IN EVENING), BID
  2. BRUKINSA [Suspect]
     Active Substance: ZANUBRUTINIB
     Indication: B-cell small lymphocytic lymphoma
     Dosage: 160 MILLIGRAM (2 CAPSULES IN MORNING AND 2 CAPSULES IN EVENING), BID
     Route: 048
  3. BRUKINSA [Suspect]
     Active Substance: ZANUBRUTINIB
     Dosage: 160 MILLIGRAM (2 CAPSULES IN MORNING AND 2 CAPSULES IN EVENING), BID
     Route: 048
  4. BRUKINSA [Suspect]
     Active Substance: ZANUBRUTINIB
     Dosage: 160 MILLIGRAM (2 CAPSULES IN MORNING AND 2 CAPSULES IN EVENING), BID

REACTIONS (4)
  - Fall [Not Recovered/Not Resolved]
  - Sternal fracture [Not Recovered/Not Resolved]
  - Bone contusion [Not Recovered/Not Resolved]
  - Ligament sprain [Not Recovered/Not Resolved]
